FAERS Safety Report 14044995 (Version 2)
Quarter: 2017Q4

REPORT INFORMATION
  Report Type: Spontaneous
  Country: US (occurrence: US)
  Receive Date: 20171005
  Receipt Date: 20171005
  Transmission Date: 20180321
  Serious: No
  Sender: FDA-Public Use
  Company Number: US-INDIVIOR LIMITED-INDV-101617-2017

PATIENT
  Sex: Male

DRUGS (1)
  1. SUBOXONE [Suspect]
     Active Substance: BUPRENORPHINE HYDROCHLORIDE\NALOXONE HYDROCHLORIDE
     Indication: DRUG USE DISORDER
     Dosage: 8 MG FILMS, ONE HALF OF A FILM EVERY DAY TO DAY AND A HALF
     Route: 065
     Dates: end: 20170501

REACTIONS (2)
  - Tooth disorder [Unknown]
  - Product preparation error [Recovered/Resolved]
